FAERS Safety Report 16260236 (Version 1)
Quarter: 2019Q2

REPORT INFORMATION
  Report Type: Spontaneous
  Country: US (occurrence: US)
  Receive Date: 20190501
  Receipt Date: 20190501
  Transmission Date: 20190711
  Serious: No
  Sender: FDA-Public Use
  Company Number: US-PFIZER INC-2016572376

PATIENT
  Age: 25 Year
  Sex: Male
  Weight: 64 kg

DRUGS (5)
  1. GENOTROPIN [Suspect]
     Active Substance: SOMATROPIN
     Indication: DIABETES INSIPIDUS
  2. GENOTROPIN [Suspect]
     Active Substance: SOMATROPIN
     Indication: GROWTH HORMONE DEFICIENCY
     Dosage: UNK
     Dates: start: 2007
  3. GENOTROPIN [Suspect]
     Active Substance: SOMATROPIN
     Indication: HYPOTHYROIDISM
     Dosage: 2 MG, 6 DAYS A WEEK
  4. GENOTROPIN [Suspect]
     Active Substance: SOMATROPIN
     Indication: ADRENAL INSUFFICIENCY
     Dosage: 2.4 MG, SIX DAYS PER WEEK
     Dates: start: 20080425
  5. GENOTROPIN [Suspect]
     Active Substance: SOMATROPIN
     Indication: HYPOGONADISM MALE

REACTIONS (2)
  - Anxiety [Unknown]
  - Weight decreased [Unknown]
